FAERS Safety Report 15058029 (Version 2)
Quarter: 2018Q3

REPORT INFORMATION
  Report Type: Spontaneous
  Country: US (occurrence: US)
  Receive Date: 20180625
  Receipt Date: 20180806
  Transmission Date: 20181010
  Serious: Yes (Other)
  Sender: FDA-Public Use
  Company Number: US-PFIZER INC-2018252876

PATIENT
  Age: 54 Year
  Sex: Female

DRUGS (2)
  1. XELJANZ XR [Suspect]
     Active Substance: TOFACITINIB CITRATE
     Dosage: 11 MG, UNK
     Dates: start: 20180320, end: 20180611
  2. XELJANZ XR [Suspect]
     Active Substance: TOFACITINIB CITRATE
     Dosage: UNK UNK, DAILY
     Route: 048
     Dates: start: 2018, end: 2018

REACTIONS (3)
  - Enteritis infectious [Unknown]
  - Swelling face [Unknown]
  - Swelling [Unknown]

NARRATIVE: CASE EVENT DATE: 20180611
